FAERS Safety Report 4677677-9 (Version None)
Quarter: 2005Q2

REPORT INFORMATION
  Report Type: 
  Country: None (occurrence: None)
  Receive Date: 20050531
  Receipt Date: 20040115
  Transmission Date: 20051028
  Serious: Yes (Hospitalization, Other)
  Sender: FDA-Public Use
  Company Number: US-BRISTOL-MYERS SQUIBB COMPANY-12479440

PATIENT
  Age: 44 Year
  Sex: Female

DRUGS (4)
  1. SERZONE [Suspect]
     Indication: BIPOLAR DISORDER
     Dates: start: 20010601, end: 20020701
  2. SERZONE [Suspect]
     Indication: DEPRESSION
     Dates: start: 20010601, end: 20020701
  3. TOPAMAX [Concomitant]
  4. RISTORIL [Concomitant]

REACTIONS (9)
  - ABDOMINAL PAIN [None]
  - BARRETT'S OESOPHAGUS [None]
  - HEPATIC ENZYME INCREASED [None]
  - HEPATOCELLULAR DAMAGE [None]
  - MASS [None]
  - MOOD SWINGS [None]
  - NAUSEA [None]
  - PORTAL HYPERTENSIVE GASTROPATHY [None]
  - VOMITING [None]
